FAERS Safety Report 4979703-6 (Version None)
Quarter: 2006Q1

REPORT INFORMATION
  Report Type: 
  Country: None (occurrence: None)
  Receive Date: 20060227
  Receipt Date: 20050105
  Transmission Date: 20060701
  Serious: Yes (Life-Threatening, Hospitalization, Disabling, Other)
  Sender: FDA-Public Use
  Company Number: WAES  0501USA00432

PATIENT
  Age: 80 Year
  Sex: Male
  Weight: 72.5755 kg

DRUGS (2)
  1. ZOCOR [Suspect]
     Indication: HYPERLIPIDAEMIA
     Dosage: 80 MG DAILY PO
     Route: 048
     Dates: end: 20030215
  2. ERYTHROMYCIN [Suspect]
     Indication: UPPER RESPIRATORY TRACT INFECTION

REACTIONS (2)
  - RENAL FAILURE CHRONIC [None]
  - RHABDOMYOLYSIS [None]
